FAERS Safety Report 9444721 (Version 1)
Quarter: 2013Q3

REPORT INFORMATION
  Report Type: Report from Study
  Country: US (occurrence: US)
  Receive Date: 20130807
  Receipt Date: 20130807
  Transmission Date: 20140515
  Serious: Yes (Hospitalization)
  Sender: FDA-Public Use
  Company Number: US-ROCHE-678072

PATIENT
  Age: 51 Year
  Sex: Female
  Weight: 75.9 kg

DRUGS (18)
  1. RITUXIMAB [Suspect]
     Indication: RHEUMATOID ARTHRITIS
     Dosage: LAST DOSE PRIOR TO SAE: 07 OCTOBER 2009.
     Route: 042
  2. PLAQUENIL [Concomitant]
     Route: 065
  3. ATENOLOL [Concomitant]
     Route: 065
  4. VERAPAMIL [Concomitant]
     Route: 065
  5. ZANTAC [Concomitant]
     Route: 065
  6. INDOMETHACIN [Concomitant]
     Route: 065
  7. PROZAC [Concomitant]
     Route: 065
  8. FOLIC ACID [Concomitant]
     Route: 065
  9. LISINOPRIL [Concomitant]
     Route: 065
  10. ASPIRIN [Concomitant]
     Route: 065
  11. DIVALPROEX [Concomitant]
     Route: 065
  12. POTASSIUM CHLORIDE [Concomitant]
     Route: 065
     Dates: start: 20090729, end: 20091222
  13. DARVOCET-N [Concomitant]
     Dosage: DRUG: DARVOCET N- 100.
     Route: 065
  14. IMITREX [Concomitant]
     Route: 065
  15. DOXAZOSIN [Concomitant]
     Route: 065
  16. METHOTREXATE [Concomitant]
     Dosage: FREQUENCY: QWK.
     Route: 065
     Dates: start: 20061220
  17. PREDNISONE [Concomitant]
     Route: 065
  18. PLACEBO [Suspect]
     Indication: RHEUMATOID ARTHRITIS
     Dosage: LAST DOSE PRIOR TO SAE: 31 OCTOBER 2006.
     Route: 042
     Dates: start: 20061017

REACTIONS (1)
  - Colitis [Recovered/Resolved]
